FAERS Safety Report 8098577-0 (Version None)
Quarter: 2012Q1

REPORT INFORMATION
  Report Type: 
  Country: None (occurrence: None)
  Receive Date: 20120129
  Receipt Date: 20111026
  Transmission Date: 20120608
  Serious: Yes (Hospitalization, Other)
  Sender: FDA-Public Use
  Company Number: US-ABBOTT-11P-163-0857799-00

PATIENT
  Sex: Female
  Weight: 99.88 kg

DRUGS (4)
  1. HUMIRA [Suspect]
     Dates: start: 20101105, end: 20101105
  2. CELEBREX [Concomitant]
     Indication: ARTHRITIS
  3. HUMIRA [Suspect]
     Indication: PSORIASIS
     Route: 058
     Dates: start: 20101029, end: 20101029
  4. HUMIRA [Suspect]
     Dates: start: 20101112

REACTIONS (1)
  - BREAST CANCER [None]
